FAERS Safety Report 21858948 (Version 1)
Quarter: 2023Q1

REPORT INFORMATION
  Report Type: Spontaneous
  Country: IT (occurrence: IT)
  Receive Date: 20230113
  Receipt Date: 20230113
  Transmission Date: 20230418
  Serious: Yes (Other)
  Sender: FDA-Public Use
  Company Number: IT-MINISAL02-900425

PATIENT
  Age: 56 Year
  Sex: Female
  Weight: 68 kg

DRUGS (4)
  1. GEMCITABINE [Suspect]
     Active Substance: GEMCITABINE
     Indication: Breast neoplasm
     Dosage: 1340 MILLIGRAM
     Route: 065
     Dates: start: 20221128, end: 20221128
  2. GEMCITABINE [Suspect]
     Active Substance: GEMCITABINE
     Dosage: 1500 MILLIGRAM
     Route: 040
     Dates: start: 20221102, end: 20221102
  3. CARBOPLATIN [Suspect]
     Active Substance: CARBOPLATIN
     Indication: Breast neoplasm
     Dosage: 200 MILLIGRAM
     Route: 065
     Dates: start: 20221128, end: 20221128
  4. CARBOPLATIN [Suspect]
     Active Substance: CARBOPLATIN
     Dosage: 220 MILLIGRAM
     Route: 040
     Dates: start: 20221102, end: 20221102

REACTIONS (3)
  - Leukopenia [Recovering/Resolving]
  - Thrombocytopenia [Recovering/Resolving]
  - Neutropenia [Unknown]

NARRATIVE: CASE EVENT DATE: 20221212
